FAERS Safety Report 6608739-4 (Version None)
Quarter: 2010Q1

REPORT INFORMATION
  Report Type: 
  Country: None (occurrence: None)
  Receive Date: 20100301
  Receipt Date: 20100218
  Transmission Date: 20100710
  Serious: Yes (Other)
  Sender: FDA-Public Use
  Company Number: FI-JNJFOC-20070900304

PATIENT
  Sex: Female

DRUGS (4)
  1. REMICADE [Suspect]
     Indication: JUVENILE ARTHRITIS
     Route: 042
  2. METHOTREXATE [Concomitant]
  3. PARACETAMOL [Concomitant]
     Indication: PREMEDICATION
  4. CETIRIZINE HCL [Concomitant]
     Indication: PREMEDICATION

REACTIONS (3)
  - DYSPNOEA [None]
  - INFUSION RELATED REACTION [None]
  - NAUSEA [None]
